FAERS Safety Report 8556900-4 (Version None)
Quarter: 2012Q3

REPORT INFORMATION
  Report Type: 
  Country: None (occurrence: None)
  Receive Date: 20120801
  Receipt Date: 20120725
  Transmission Date: 20120928
  Serious: No
  Sender: FDA-Public Use
  Company Number: US-PFIZER INC-2012118919

PATIENT
  Sex: Male
  Weight: 68.481 kg

DRUGS (8)
  1. SUTENT [Suspect]
     Indication: RENAL CANCER
     Dosage: 50 MG DAILY X28 DAYS Q 42 DAYS
     Dates: start: 20120510
  2. LOVENOX [Concomitant]
     Dosage: UNK
     Dates: start: 20120101
  3. METOPROLOL SUCCINATE EXTENDED RELEASE [Concomitant]
     Dosage: 50 MG, UNK
  4. ATORVASTATIN [Concomitant]
     Dosage: UNK
  5. COUMADIN [Concomitant]
     Dosage: UNK
     Dates: end: 20120420
  6. SUTENT [Suspect]
     Indication: RENAL CELL CARCINOMA
  7. AMLODIPINE [Concomitant]
     Dosage: 10 MG, UNK
  8. LEVOTHYROXINE [Concomitant]

REACTIONS (11)
  - FATIGUE [None]
  - PALLOR [None]
  - CHROMATURIA [None]
  - WEIGHT DECREASED [None]
  - MALAISE [None]
  - HICCUPS [None]
  - DECREASED APPETITE [None]
  - LETHARGY [None]
  - HYPOTHYROIDISM [None]
  - DYSPEPSIA [None]
  - RED BLOOD CELLS URINE [None]
